FAERS Safety Report 17048934 (Version 2)
Quarter: 2019Q4

REPORT INFORMATION
  Report Type: Spontaneous
  Country: US (occurrence: US)
  Receive Date: 20191119
  Receipt Date: 20191223
  Transmission Date: 20200122
  Serious: No
  Sender: FDA-Public Use
  Company Number: US-SA-2019SA316224

PATIENT
  Age: 46 Year
  Sex: Female
  Weight: 61.2 kg

DRUGS (1)
  1. DUPIXENT [Suspect]
     Active Substance: DUPILUMAB
     Dosage: UNK, 1X
     Dates: start: 20191107

REACTIONS (4)
  - Joint swelling [Unknown]
  - Peripheral swelling [Unknown]
  - Gait disturbance [Unknown]
  - Erythema nodosum [Unknown]

NARRATIVE: CASE EVENT DATE: 20191109
